FAERS Safety Report 24065386 (Version 1)
Quarter: 2024Q3

REPORT INFORMATION
  Report Type: Spontaneous
  Country: FR (occurrence: FR)
  Receive Date: 20240709
  Receipt Date: 20240709
  Transmission Date: 20241016
  Serious: Yes (Hospitalization, Other)
  Sender: B BRAUN
  Company Number: FR-B.Braun Medical Inc.-2158937

PATIENT
  Age: 24 Month
  Sex: Female
  Weight: 12.6 kg

DRUGS (15)
  1. ACETAMINOPHEN [Suspect]
     Active Substance: ACETAMINOPHEN
  2. NALBUPHINE [Suspect]
     Active Substance: NALBUPHINE
  3. DEXTROSE [Concomitant]
     Active Substance: DEXTROSE\DEXTROSE MONOHYDRATE
  4. METHOTREXATE [Concomitant]
     Active Substance: METHOTREXATE
  5. VITAMIN K [Concomitant]
     Active Substance: PHYTONADIONE
  6. VINCRISTINE [Concomitant]
     Active Substance: VINCRISTINE
  7. SODIUM CHLORIDE [Concomitant]
     Active Substance: SODIUM CHLORIDE
  8. DEXAMETHASONE [Suspect]
     Active Substance: DEXAMETHASONE
  9. CHOLECALCIFEROL [Suspect]
     Active Substance: CHOLECALCIFEROL
  10. CEFOTAXIME [Suspect]
     Active Substance: CEFOTAXIME SODIUM
  11. FUROSEMIDE [Suspect]
     Active Substance: FUROSEMIDE
  12. FASTURTEC [Suspect]
     Active Substance: RASBURICASE
  13. MORPHINE [Suspect]
     Active Substance: MORPHINE
  14. ALFACALCIDOL [Suspect]
     Active Substance: ALFACALCIDOL
  15. ALBUMIN HUMAN [Suspect]
     Active Substance: ALBUMIN HUMAN

REACTIONS (1)
  - Pancreatitis acute [Recovered/Resolved]
